FAERS Safety Report 6507885-3 (Version None)
Quarter: 2009Q4

REPORT INFORMATION
  Report Type: 
  Country: None (occurrence: None)
  Receive Date: 20091221
  Receipt Date: 20091208
  Transmission Date: 20100525
  Serious: Yes (Death, Hospitalization)
  Sender: FDA-Public Use
  Company Number: A0835713A

PATIENT
  Age: 74 Year
  Sex: Female

DRUGS (1)
  1. AVANDIA [Suspect]
     Route: 048
     Dates: end: 20050815

REACTIONS (4)
  - DEATH [None]
  - HAEMORRHAGE INTRACRANIAL [None]
  - HYPERCOAGULATION [None]
  - TRANSIENT ISCHAEMIC ATTACK [None]
